FAERS Safety Report 19904547 (Version 1)
Quarter: 2021Q4

REPORT INFORMATION
  Report Type: Spontaneous
  Country: JP (occurrence: JP)
  Receive Date: 20211001
  Receipt Date: 20211001
  Transmission Date: 20220303
  Serious: Yes (Other)
  Sender: FDA-Public Use
  Company Number: JP-PFIZER INC-202101129082

PATIENT
  Age: 34 Year
  Sex: Male

DRUGS (2)
  1. FLUCONAZOLE [Interacting]
     Active Substance: FLUCONAZOLE
     Indication: Oesophageal candidiasis
     Dosage: UNK
     Route: 048
  2. TACROLIMUS [Interacting]
     Active Substance: TACROLIMUS
     Indication: Colitis ulcerative
     Dosage: 6 MG, DAILY

REACTIONS (4)
  - Drug interaction [Unknown]
  - Immunosuppressant drug level increased [Unknown]
  - Renal impairment [Unknown]
  - Hyperkalaemia [Unknown]
